FAERS Safety Report 9915148 (Version 3)
Quarter: 2014Q4

REPORT INFORMATION
  Report Type: Report from Study
  Country: DE (occurrence: DE)
  Receive Date: 20140220
  Receipt Date: 20141015
  Transmission Date: 20150529
  Serious: Yes (Death, Life-Threatening)
  Sender: FDA-Public Use
  Company Number: DE-ASTRAZENECA-2014SE10803

PATIENT
  Age: 69 Year
  Sex: Male

DRUGS (2)
  1. TICAGRELOR [Suspect]
     Active Substance: TICAGRELOR
     Indication: ACUTE CORONARY SYNDROME
     Route: 048
     Dates: start: 20131009
  2. ASA [Suspect]
     Active Substance: ASPIRIN
     Indication: ACUTE CORONARY SYNDROME
     Route: 048
     Dates: start: 20131009

REACTIONS (3)
  - Chest pain [Fatal]
  - Sudden cardiac death [Fatal]
  - Cardiac arrest [Fatal]

NARRATIVE: CASE EVENT DATE: 20131010
